FAERS Safety Report 4781061-7 (Version None)
Quarter: 2005Q3

REPORT INFORMATION
  Report Type: 
  Country: None (occurrence: None)
  Receive Date: 20050926
  Receipt Date: 20050913
  Transmission Date: 20060218
  Serious: Yes (Death)
  Sender: FDA-Public Use
  Company Number: 2005128826

PATIENT
  Age: 21 Year
  Sex: Female

DRUGS (5)
  1. DOXORUBICIN HYDROCHLORIDE [Suspect]
     Indication: ILL-DEFINED DISORDER
  2. CYTARABINE [Concomitant]
  3. DAUNORUBICIN (DAUNORUBICIN) [Concomitant]
  4. ETOPOSIDE [Concomitant]
  5. TRETINOIN [Concomitant]

REACTIONS (10)
  - CARDIAC PERFORATION [None]
  - CONGESTIVE CARDIOMYOPATHY [None]
  - ENCEPHALOPATHY [None]
  - HEPATOMEGALY [None]
  - JUGULAR VEIN THROMBOSIS [None]
  - MULTI-ORGAN FAILURE [None]
  - NECROSIS ISCHAEMIC [None]
  - RENAL FAILURE [None]
  - VENOOCCLUSIVE LIVER DISEASE [None]
  - WEIGHT INCREASED [None]
